FAERS Safety Report 11021944 (Version 2)
Quarter: 2015Q2

REPORT INFORMATION
  Report Type: Report from Study
  Country: US (occurrence: US)
  Receive Date: 20150413
  Receipt Date: 20150414
  Transmission Date: 20150821
  Serious: Yes (Hospitalization)
  Sender: FDA-Public Use
  Company Number: US-BAYER-2015-115503

PATIENT
  Age: 10 Year
  Sex: Female

DRUGS (7)
  1. UNFRACTIONATED HEPARIN [Suspect]
     Active Substance: HEPARIN SODIUM
     Indication: EMBOLIC STROKE
  2. NIMODIPINE. [Concomitant]
     Active Substance: NIMODIPINE
     Indication: EMBOLIC STROKE
  3. HEPARIN [Suspect]
     Active Substance: HEPARIN SODIUM
     Indication: ANTICOAGULANT THERAPY
  4. HEPARIN [Suspect]
     Active Substance: HEPARIN SODIUM
     Indication: EMBOLIC STROKE
  5. ASPIRIN. [Suspect]
     Active Substance: ASPIRIN
     Indication: EMBOLIC STROKE
  6. UNFRACTIONATED HEPARIN [Suspect]
     Active Substance: HEPARIN SODIUM
     Indication: ANTICOAGULANT THERAPY
  7. NIMODIPINE. [Concomitant]
     Active Substance: NIMODIPINE
     Indication: CEREBRAL VASOCONSTRICTION

REACTIONS (3)
  - Drug ineffective [None]
  - Ischaemic stroke [Recovering/Resolving]
  - Haemorrhage [Recovering/Resolving]
